FAERS Safety Report 8061645-3 (Version None)
Quarter: 2012Q1

REPORT INFORMATION
  Report Type: 
  Country: None (occurrence: None)
  Receive Date: 20120123
  Receipt Date: 20120110
  Transmission Date: 20120608
  Serious: Yes (Hospitalization)
  Sender: FDA-Public Use
  Company Number: IN-BRISTOL-MYERS SQUIBB COMPANY-16354623

PATIENT
  Age: 24 Year
  Sex: Female

DRUGS (2)
  1. METFORMIN HCL [Suspect]
  2. CLOMIPHENE CITRATE [Suspect]
     Indication: OVULATION INDUCTION
     Dosage: 2ND TO 6TH DAY OF MENSTRUAL CYCLE

REACTIONS (1)
  - RUPTURED ECTOPIC PREGNANCY [None]
